FAERS Safety Report 8540052-0 (Version None)
Quarter: 2012Q3

REPORT INFORMATION
  Report Type: 
  Country: None (occurrence: None)
  Receive Date: 20120726
  Receipt Date: 20120720
  Transmission Date: 20120928
  Serious: Yes (Other)
  Sender: FDA-Public Use
  Company Number: JP-009507513-1207JPN008156

PATIENT

DRUGS (8)
  1. REBETOL [Suspect]
     Route: 048
     Dates: start: 20120528, end: 20120601
  2. ANTEBATE [Concomitant]
     Dosage: QUANTUM PLACET/DAY
     Route: 061
     Dates: start: 20120426
  3. URSO 250 [Concomitant]
     Indication: HEPATITIS C
     Route: 048
  4. FLAVITAN [Concomitant]
     Route: 048
     Dates: start: 20120521, end: 20120527
  5. PEG-INTRON [Suspect]
     Indication: HEPATITIS C
     Dosage: 1.5MCG/KG/WEEK
     Route: 058
     Dates: start: 20120423, end: 20120429
  6. REBETOL [Suspect]
     Indication: HEPATITIS C
     Route: 048
     Dates: start: 20120423, end: 20120527
  7. PEG-INTRON [Suspect]
     Dosage: 1.0MCG/KG/WEEK
     Route: 058
     Dates: start: 20120430
  8. TELAVIC [Suspect]
     Indication: HEPATITIS C
     Route: 048
     Dates: start: 20120423, end: 20120601

REACTIONS (1)
  - RASH [None]
